FAERS Safety Report 4704324-X (Version None)
Quarter: 2005Q2

REPORT INFORMATION
  Report Type: 
  Country: None (occurrence: None)
  Receive Date: 20050629
  Receipt Date: 20050614
  Transmission Date: 20051028
  Serious: Yes (Hospitalization)
  Sender: FDA-Public Use
  Company Number: 215357

PATIENT
  Age: 54 Year
  Sex: Male

DRUGS (10)
  1. RAPTIVA [Suspect]
     Indication: PSORIASIS
     Dosage: 0.8 ML, 1/WEEK
     Dates: start: 20050301, end: 20050503
  2. RAPTIVA [Suspect]
     Dosage: 0.8 ML, 1/WEEK
     Dates: start: 20050517, end: 20050531
  3. ASPIRIN [Concomitant]
  4. LIPITOR [Concomitant]
  5. PROTONIX [Concomitant]
  6. PLAVIX [Concomitant]
  7. ZYRTEC [Concomitant]
  8. SINGULAIR [Concomitant]
  9. BENICAR [Concomitant]
  10. LOPRESSOR [Concomitant]

REACTIONS (5)
  - INFECTION [None]
  - PROSTATITIS [None]
  - PSORIATIC ARTHROPATHY [None]
  - PYREXIA [None]
  - RESPIRATORY DISORDER [None]
